FAERS Safety Report 8095751-4 (Version None)
Quarter: 2012Q1

REPORT INFORMATION
  Report Type: 
  Country: None (occurrence: None)
  Receive Date: 20120126
  Receipt Date: 20120111
  Transmission Date: 20120608
  Serious: Yes (Other)
  Sender: FDA-Public Use
  Company Number: KR-20120001

PATIENT
  Age: 63 Year
  Sex: Female

DRUGS (3)
  1. LIPIODOL (ETHIODIZED OIL) [Suspect]
     Indication: THERAPEUTIC EMBOLISATION
     Dosage: 5 ML (5 ML, 1 IN 1 TOTAL)
     Route: 013
  2. LAMIVUDINE (LAMIVUDINE) (LAMIVUDINE) [Concomitant]
  3. ADRIAMYCIN PFS [Suspect]
     Indication: THERAPEUTIC EMBOLISATION
     Dosage: 50 MG (50 MG, 1 IN 1 TOTAL)
     Route: 013

REACTIONS (8)
  - SKIN INDURATION [None]
  - EXTRAVASATION [None]
  - PAIN [None]
  - PERIPHERAL ARTERIAL OCCLUSIVE DISEASE [None]
  - RASH ERYTHEMATOUS [None]
  - EPIDERMAL NECROSIS [None]
  - OFF LABEL USE [None]
  - SKIN LESION [None]
